FAERS Safety Report 18581035 (Version 2)
Quarter: 2020Q4

REPORT INFORMATION
  Report Type: Spontaneous
  Country: ES (occurrence: ES)
  Receive Date: 20201204
  Receipt Date: 20201217
  Transmission Date: 20210114
  Serious: Yes (Hospitalization, Other)
  Sender: FDA-Public Use
  Company Number: ES-STRIDES ARCOLAB LIMITED-2020SP014925

PATIENT
  Age: 13 Year
  Sex: Male

DRUGS (8)
  1. FENTANYL. [Concomitant]
     Active Substance: FENTANYL
     Indication: INDUCTION OF ANAESTHESIA
     Dosage: 2 MICROGRAM/KILOGRAM
     Route: 042
  2. PROPOFOL. [Concomitant]
     Active Substance: PROPOFOL
     Indication: INDUCTION OF ANAESTHESIA
     Dosage: 4 MILLIGRAM/KILOGRAM (TARGET-CONTROLLED INFUSION)
     Route: 042
  3. LIDOCAINE. [Concomitant]
     Active Substance: LIDOCAINE
     Indication: LOCAL ANAESTHESIA
     Dosage: 2 MILLILITER
     Route: 065
  4. OXYGEN. [Concomitant]
     Active Substance: OXYGEN
     Indication: MECHANICAL VENTILATION
     Dosage: 8 L/MIN
     Route: 065
  5. PREDNISOLONE. [Suspect]
     Active Substance: PREDNISOLONE
     Indication: NEPHROTIC SYNDROME
     Dosage: 60 MILLIGRAM/SQ. METER PER DAY
     Route: 048
  6. PROPOFOL. [Concomitant]
     Active Substance: PROPOFOL
     Dosage: 4 MILLIGRAM/KILOGRAM (ANESTHETIC REINDUCTION)
     Route: 065
  7. BUPIVACAINE. [Concomitant]
     Active Substance: BUPIVACAINE
     Indication: LOCAL ANAESTHESIA
     Dosage: 2 MILLILITER
     Route: 065
  8. METHYLPREDNISOLONE. [Suspect]
     Active Substance: METHYLPREDNISOLONE
     Indication: NEPHROTIC SYNDROME
     Dosage: 3 DOSAGE FORM (PER DAY) BOLUSES
     Route: 040

REACTIONS (11)
  - Anaesthetic complication neurological [Recovered/Resolved]
  - Agitation [Recovered/Resolved]
  - Breath holding [Recovered/Resolved]
  - Somnolence [Not Recovered/Not Resolved]
  - Disorientation [Recovered/Resolved]
  - Hyperventilation [Recovered/Resolved]
  - Dyspraxia [Recovered/Resolved]
  - Cyanosis [Recovered/Resolved]
  - Anxiety [Recovered/Resolved]
  - Chest pain [Recovered/Resolved]
  - Irritability [Recovered/Resolved]
